FAERS Safety Report 4422061-6 (Version None)
Quarter: 2004Q3

REPORT INFORMATION
  Report Type: 
  Country: None (occurrence: None)
  Receive Date: 20040712
  Receipt Date: 20030605
  Transmission Date: 20050211
  Serious: Yes (Hospitalization)
  Sender: FDA-Public Use
  Company Number: TAP2003Q01396

PATIENT
  Age: 71 Year
  Sex: Male
  Weight: 65.318 kg

DRUGS (3)
  1. PREVACID [Suspect]
     Indication: GASTROOESOPHAGEAL REFLUX DISEASE
     Dosage: 30 MG, 1 IN 1 D, ORAL
     Route: 048
     Dates: start: 20030301
  2. NEXIUM [Concomitant]
  3. MYLANTA (MYLANTA) [Concomitant]

REACTIONS (9)
  - ASTHENIA [None]
  - CONDITION AGGRAVATED [None]
  - DEHYDRATION [None]
  - DIARRHOEA [None]
  - FATIGUE [None]
  - HAEMATEMESIS [None]
  - NAUSEA [None]
  - NERVOUSNESS [None]
  - TINNITUS [None]
